FAERS Safety Report 7620176-2 (Version None)
Quarter: 2011Q3

REPORT INFORMATION
  Report Type: 
  Country: None (occurrence: None)
  Receive Date: 20110719
  Receipt Date: 20110708
  Transmission Date: 20111222
  Serious: No
  Sender: FDA-Public Use
  Company Number: US-JNJFOC-20110704218

PATIENT
  Age: 49 Year
  Sex: Male

DRUGS (3)
  1. HALDOL [Concomitant]
  2. INVEGA SUSTENNA [Suspect]
     Indication: SCHIZOPHRENIA
     Route: 030
     Dates: start: 20110101
  3. UNKNOWN MEDICATION [Concomitant]

REACTIONS (1)
  - INJECTION SITE NODULE [None]
